FAERS Safety Report 5926234-2 (Version None)
Quarter: 2008Q4

REPORT INFORMATION
  Report Type: 
  Country: None (occurrence: None)
  Receive Date: 20081022
  Receipt Date: 20081013
  Transmission Date: 20090506
  Serious: Yes (Hospitalization)
  Sender: FDA-Public Use
  Company Number: CZ-RANBAXY-2008RR-18580

PATIENT
  Age: 40 Year
  Sex: Male

DRUGS (4)
  1. FLUCONAZOLE [Suspect]
     Dosage: 150 MG, QD
     Route: 048
  2. FLUCONAZOLE [Suspect]
     Dosage: UNK MG, QD
  3. FLUCONAZOLE [Suspect]
     Dosage: 400 MG, QD
     Route: 042
  4. VORICONAZOLE [Suspect]
     Dosage: 200 MG, QD
     Route: 048

REACTIONS (1)
  - DRUG RESISTANCE [None]
